FAERS Safety Report 6571300-4 (Version None)
Quarter: 2010Q1

REPORT INFORMATION
  Report Type: 
  Country: None (occurrence: None)
  Receive Date: 20100129
  Receipt Date: 20100118
  Transmission Date: 20100710
  Serious: Yes (Hospitalization)
  Sender: FDA-Public Use
  Company Number: 2009JP007621

PATIENT
  Age: 56 Year
  Sex: Female
  Weight: 46.9 kg

DRUGS (4)
  1. FUNGUARD (MICAFUNGIN) INJECTION [Suspect]
     Indication: MEDIASTINITIS
     Dosage: 75 MG, UID/QD, IV DRIP
     Route: 041
     Dates: start: 20091031, end: 20091112
  2. VANCOMYCIN [Suspect]
     Indication: MEDIASTINITIS
     Dosage: 0.5 G, QOD, IV NOS
     Route: 042
     Dates: start: 20091026, end: 20091111
  3. ADALAT [Suspect]
     Indication: PYELONEPHRITIS
     Dosage: 20 MG, BID, ORAL
     Route: 048
     Dates: start: 20091109, end: 20091118
  4. ESPO (EPOETIN ALFA) INJECTION [Suspect]
     Indication: PYELONEPHRITIS
     Dosage: 750 IU, 3XWEEKLY, IV NOS
     Route: 042
     Dates: start: 20091111

REACTIONS (1)
  - TOXIC SKIN ERUPTION [None]
